FAERS Safety Report 5404740-7 (Version None)
Quarter: 2007Q3

REPORT INFORMATION
  Report Type: 
  Country: None (occurrence: None)
  Receive Date: 20070801
  Receipt Date: 20070726
  Transmission Date: 20080115
  Serious: Yes (Death)
  Sender: FDA-Public Use
  Company Number: 028-C5013-07071592

PATIENT
  Age: 59 Year
  Sex: Male
  Weight: 52.2 kg

DRUGS (2)
  1. CC-5013 (LENALIDOMIDE) (CAPSULES) [Suspect]
     Indication: MULTIPLE MYELOMA
     Dosage: 25 MG, ORAL
     Route: 048
     Dates: start: 20070503, end: 20070718
  2. DEXAMETHASONE TAB [Suspect]
     Indication: MULTIPLE MYELOMA
     Dosage: 40 MG, 1-4, 9-12, 17-20 DAYS,
     Dates: start: 20070503, end: 20070718

REACTIONS (1)
  - HOSPITALISATION [None]
